FAERS Safety Report 21258470 (Version 2)
Quarter: 2024Q1

REPORT INFORMATION
  Report Type: Spontaneous
  Country: GB (occurrence: GB)
  Receive Date: 20220826
  Receipt Date: 20240129
  Transmission Date: 20240410
  Serious: Yes (Disabling, Other)
  Sender: FDA-Public Use
  Company Number: GB-MHRA-MED-202208222342412610-FZHMB

PATIENT
  Age: 32 Year
  Sex: Female
  Weight: 51 kg

DRUGS (1)
  1. SERTRALINE [Suspect]
     Active Substance: SERTRALINE HYDROCHLORIDE
     Indication: Depression
     Dosage: 25 MILLIGRAM, 4 YEARS IN THE MIDDLE 50 MG
     Route: 065
     Dates: start: 20140202, end: 20210202

REACTIONS (13)
  - Autoimmune disorder [Not Recovered/Not Resolved]
  - Abnormal dreams [Unknown]
  - Loss of personal independence in daily activities [Unknown]
  - Raynaud^s phenomenon [Recovering/Resolving]
  - Fibromyalgia [Unknown]
  - Abnormal loss of weight [Unknown]
  - Decreased appetite [Unknown]
  - Libido decreased [Unknown]
  - Withdrawal syndrome [Unknown]
  - Tremor [Unknown]
  - Insomnia [Unknown]
  - Asthenia [Unknown]
  - Alopecia [Unknown]

NARRATIVE: CASE EVENT DATE: 20210202
